FAERS Safety Report 24374931 (Version 2)
Quarter: 2024Q4

REPORT INFORMATION
  Report Type: Spontaneous
  Country: US (occurrence: US)
  Receive Date: 20240927
  Receipt Date: 20241001
  Transmission Date: 20250115
  Serious: Yes (Hospitalization, Other)
  Sender: MERCK
  Company Number: US-009507513-2409USA007793

PATIENT
  Age: 74 Year
  Sex: Female

DRUGS (3)
  1. KEYTRUDA [Suspect]
     Active Substance: PEMBROLIZUMAB
     Indication: Triple negative breast cancer
     Dosage: 200 MILLIGRAM, Q3W
     Dates: start: 20230806, end: 20240823
  2. KEYTRUDA [Suspect]
     Active Substance: PEMBROLIZUMAB
     Dosage: 200 MILLIGRAM, Q3W
     Dates: start: 20240913, end: 20240913
  3. LEVOTHYROXINE [Concomitant]
     Active Substance: LEVOTHYROXINE
     Indication: Hypothyroidism
     Dosage: UNK
     Dates: start: 202406

REACTIONS (24)
  - Influenza like illness [Unknown]
  - Adrenal insufficiency [Unknown]
  - Decreased appetite [Unknown]
  - Nausea [Unknown]
  - Oropharyngeal discomfort [Unknown]
  - Feeding disorder [Unknown]
  - Dysphagia [Unknown]
  - Rash pruritic [Unknown]
  - Blister [Not Recovered/Not Resolved]
  - Burning sensation [Not Recovered/Not Resolved]
  - Skin exfoliation [Not Recovered/Not Resolved]
  - Skin induration [Not Recovered/Not Resolved]
  - Rash vesicular [Not Recovered/Not Resolved]
  - Pain in extremity [Not Recovered/Not Resolved]
  - Vaginal infection [Unknown]
  - Thyroid hormones decreased [Unknown]
  - Thyroid hormone replacement therapy [Unknown]
  - Hypotension [Unknown]
  - Heart rate irregular [Unknown]
  - Vulvovaginal dryness [Unknown]
  - Dyspareunia [Unknown]
  - Hot flush [Unknown]
  - Weight decreased [Unknown]
  - Fatigue [Unknown]

NARRATIVE: CASE EVENT DATE: 20230801
